FAERS Safety Report 4716308-6 (Version None)
Quarter: 2005Q3

REPORT INFORMATION
  Report Type: 
  Country: None (occurrence: None)
  Receive Date: 20050711
  Receipt Date: 20041015
  Transmission Date: 20060218
  Serious: Yes (Other)
  Sender: FDA-Public Use
  Company Number: 383896

PATIENT
  Age: 18 Year
  Sex: Male

DRUGS (6)
  1. MYCOPHENOLATE MOFETIL (MYCOPHENOLATE MOFETIL) [Suspect]
     Indication: IMMUNOSUPPRESSION
  2. MYCOPHENOLATE MOFETIL (MYCOPHENOLATE MOFETIL) [Suspect]
     Indication: PROPHYLAXIS AGAINST TRANSPLANT REJECTION
  3. CYCLOSPORINE [Suspect]
     Indication: IMMUNOSUPPRESSION
  4. CYCLOSPORINE [Suspect]
     Indication: PROPHYLAXIS AGAINST TRANSPLANT REJECTION
  5. PREDNISONE [Suspect]
     Indication: IMMUNOSUPPRESSION
  6. PREDNISONE [Suspect]
     Indication: PROPHYLAXIS AGAINST TRANSPLANT REJECTION

REACTIONS (1)
  - SALMONELLOSIS [None]
